FAERS Safety Report 22282516 (Version 1)
Quarter: 2023Q2

REPORT INFORMATION
  Report Type: Spontaneous
  Country: CN (occurrence: CN)
  Receive Date: 20230504
  Receipt Date: 20230504
  Transmission Date: 20230721
  Serious: Yes (Death)
  Sender: FDA-Public Use
  Company Number: CN-STRIDES ARCOLAB LIMITED-2023SP006409

PATIENT
  Age: 3 Year
  Sex: Male

DRUGS (1)
  1. GLYBURIDE [Suspect]
     Active Substance: GLYBURIDE
     Indication: Product used for unknown indication
     Dosage: UNK
     Route: 048

REACTIONS (10)
  - Brain herniation [Fatal]
  - Hypoglycaemia [Fatal]
  - Coma [Fatal]
  - Brain oedema [Fatal]
  - Multiple organ dysfunction syndrome [Fatal]
  - Brain injury [Fatal]
  - Status epilepticus [Fatal]
  - Seizure [Fatal]
  - Toxicity to various agents [Fatal]
  - Accidental exposure to product [Fatal]
